FAERS Safety Report 5594452-1 (Version None)
Quarter: 2008Q1

REPORT INFORMATION
  Report Type: 
  Country: None (occurrence: None)
  Receive Date: 20080117
  Receipt Date: 20080103
  Transmission Date: 20080703
  Serious: Yes (Other)
  Sender: FDA-Public Use
  Company Number: DE-BAYER-200810804GPV

PATIENT
  Age: 33 Year
  Sex: Male

DRUGS (1)
  1. LEPIRUDIN [Suspect]
     Indication: HEPARIN-INDUCED THROMBOCYTOPENIA
     Route: 042
     Dates: start: 19980220

REACTIONS (6)
  - ADDISON'S DISEASE [None]
  - ADRENAL HAEMORRHAGE [None]
  - ASTHENIA [None]
  - CONFUSIONAL STATE [None]
  - DIARRHOEA [None]
  - PYREXIA [None]
